FAERS Safety Report 4460744-2 (Version None)
Quarter: 2004Q3

REPORT INFORMATION
  Report Type: 
  Country: None (occurrence: None)
  Receive Date: 20040928
  Receipt Date: 20040727
  Transmission Date: 20050211
  Serious: Yes (Other)
  Sender: FDA-Public Use
  Company Number: US-GLAXOSMITHKLINE-A0519917A

PATIENT
  Age: 44 Year
  Sex: Female
  Weight: 92.8 kg

DRUGS (2)
  1. ADVAIR DISKUS 100/50 [Suspect]
     Indication: ASTHMA
     Dosage: 1PUFF TWICE PER DAY
     Route: 055
     Dates: start: 20030324
  2. ALBUTEROL [Concomitant]

REACTIONS (3)
  - ERYTHEMA [None]
  - HOARSENESS [None]
  - ORAL CANDIDIASIS [None]
